FAERS Safety Report 23163332 (Version 1)
Quarter: 2023Q4

REPORT INFORMATION
  Report Type: Spontaneous
  Country: US (occurrence: US)
  Receive Date: 20231109
  Receipt Date: 20231109
  Transmission Date: 20240110
  Serious: Yes (Other)
  Sender: FDA-Public Use
  Company Number: US-ABBVIE-5486315

PATIENT

DRUGS (4)
  1. BOTOX [Suspect]
     Active Substance: ONABOTULINUMTOXINA
     Indication: New daily persistent headache
     Dosage: TIME INTERVAL: AS NECESSARY
     Route: 065
     Dates: start: 202212, end: 202212
  2. BOTOX [Suspect]
     Active Substance: ONABOTULINUMTOXINA
     Indication: New daily persistent headache
     Dosage: TIME INTERVAL: AS NECESSARY
     Route: 065
     Dates: start: 202303, end: 202303
  3. BOTOX [Suspect]
     Active Substance: ONABOTULINUMTOXINA
     Indication: New daily persistent headache
     Dosage: TIME INTERVAL: AS NECESSARY
     Route: 065
     Dates: start: 20230915, end: 20230915
  4. BOTOX [Suspect]
     Active Substance: ONABOTULINUMTOXINA
     Indication: New daily persistent headache
     Dosage: TIME INTERVAL: AS NECESSARY
     Route: 065
     Dates: start: 20230703, end: 20230703

REACTIONS (2)
  - Spinal fusion surgery [Unknown]
  - Drug ineffective [Unknown]

NARRATIVE: CASE EVENT DATE: 20230101
